FAERS Safety Report 5518290-0 (Version None)
Quarter: 2007Q4

REPORT INFORMATION
  Report Type: 
  Country: None (occurrence: None)
  Receive Date: 20071113
  Receipt Date: 20071113
  Transmission Date: 20080405
  Serious: Yes (Hospitalization)
  Sender: FDA-Public Use
  Company Number: None

PATIENT
  Age: 67 Year
  Sex: Female

DRUGS (5)
  1. DAPTOMYCIN [Suspect]
     Dosage: 360 MG DAILY IV
     Route: 042
  2. CEFEPIME [Concomitant]
  3. METHYLPREDNISOLONE [Concomitant]
  4. IPATROPIUM [Concomitant]
  5. ALBUTEROL [Concomitant]

REACTIONS (2)
  - RESPIRATORY FAILURE [None]
  - RHABDOMYOLYSIS [None]
